FAERS Safety Report 4834220-9 (Version None)
Quarter: 2005Q4

REPORT INFORMATION
  Report Type: 
  Country: None (occurrence: None)
  Receive Date: 20051122
  Receipt Date: 20051110
  Transmission Date: 20060501
  Serious: Yes (Hospitalization, Other)
  Sender: FDA-Public Use
  Company Number: US-BRISTOL-MYERS SQUIBB COMPANY-13177373

PATIENT
  Age: 49 Year
  Sex: Male
  Weight: 72 kg

DRUGS (3)
  1. CETUXIMAB [Suspect]
     Indication: SQUAMOUS CELL CARCINOMA
     Dosage: INITIAL TX ON 21-SEP-05 AT 400 MG/M2 LOADING DOSE. TOTAL DOSE ADM THIS COURSE: 3480 MG.
     Dates: start: 20051102, end: 20051102
  2. CISPLATIN [Suspect]
     Indication: SQUAMOUS CELL CARCINOMA
     Dosage: CISPLATIN 30 MG/M2 STARTING WEEK 2-7. TOTAL DOSE ADM THIS COURSE: 274 MG.
     Dates: start: 20051026, end: 20051026
  3. RADIATION THERAPY [Suspect]
     Indication: SQUAMOUS CELL CARCINOMA
     Dosage: TX: 60GY, 2GY FX ON WK 2-7 ONCE A DAY MON-FRI. # OF FRACTIONS: 30, # OF ELAPSED DAYS: 42
     Dates: start: 20051108, end: 20051108

REACTIONS (5)
  - INFECTION [None]
  - LEUKOPENIA [None]
  - MUCOSAL INFLAMMATION [None]
  - PYREXIA [None]
  - RASH [None]
